FAERS Safety Report 5470524-7 (Version None)
Quarter: 2007Q3

REPORT INFORMATION
  Report Type: 
  Country: None (occurrence: None)
  Receive Date: 20070927
  Receipt Date: 20070927
  Transmission Date: 20080115
  Serious: Yes (Other)
  Sender: FDA-Public Use
  Company Number: None

PATIENT
  Sex: Female
  Weight: 50.8029 kg

DRUGS (2)
  1. YAZ [Suspect]
     Indication: CONTRACEPTION
     Dosage: ONE PILL ONCE A DAY PO
     Route: 048
     Dates: start: 20060710, end: 20070918
  2. YAZ [Suspect]
     Indication: MENSTRUATION IRREGULAR
     Dosage: ONE PILL ONCE A DAY PO
     Route: 048
     Dates: start: 20060710, end: 20070918

REACTIONS (1)
  - BLOOD POTASSIUM INCREASED [None]
